FAERS Safety Report 5288874-6 (Version None)
Quarter: 2007Q2

REPORT INFORMATION
  Report Type: 
  Country: None (occurrence: None)
  Receive Date: 20070405
  Receipt Date: 20070129
  Transmission Date: 20071010
  Serious: Yes (Death)
  Sender: FDA-Public Use
  Company Number: US-PFIZER INC-2007019754

PATIENT
  Sex: Male

DRUGS (1)
  1. SINEQUAN [Suspect]
     Dosage: TEXT:UNKNOWN

REACTIONS (2)
  - ANTIDEPRESSANT DRUG LEVEL INCREASED [None]
  - DEATH [None]
